FAERS Safety Report 23469061 (Version 1)
Quarter: 2024Q1

REPORT INFORMATION
  Report Type: Spontaneous
  Country: AU (occurrence: AU)
  Receive Date: 20240202
  Receipt Date: 20240202
  Transmission Date: 20240410
  Serious: Yes (Death, Hospitalization)
  Sender: FDA-Public Use
  Company Number: AU-JNJFOC-20240186905

PATIENT
  Age: 89 Year
  Sex: Male

DRUGS (10)
  1. ZYTIGA [Suspect]
     Active Substance: ABIRATERONE ACETATE
     Indication: Prostate cancer
     Route: 048
  2. ABEMACICLIB [Suspect]
     Active Substance: ABEMACICLIB
     Indication: Prostate cancer
     Route: 048
  3. PIPERACILLIN SODIUM\TAZOBACTAM SODIUM [Suspect]
     Active Substance: PIPERACILLIN SODIUM\TAZOBACTAM SODIUM
     Indication: Diverticular perforation
     Route: 042
  4. DENOSUMAB [Concomitant]
     Active Substance: DENOSUMAB
  5. LEUPROLIDE ACETATE [Concomitant]
     Active Substance: LEUPROLIDE ACETATE
  6. MAGNESIUM [Concomitant]
     Active Substance: MAGNESIUM
  7. PREDNISOLONE [Concomitant]
     Active Substance: PREDNISOLONE
  8. RIVAROXABAN [Concomitant]
     Active Substance: RIVAROXABAN
  9. SOTALOL HYDROCHLORIDE [Concomitant]
     Active Substance: SOTALOL HYDROCHLORIDE
  10. SPIRONOLACTONE [Concomitant]
     Active Substance: SPIRONOLACTONE

REACTIONS (6)
  - Abdominal pain [Fatal]
  - Anaemia [Fatal]
  - Clostridium difficile colitis [Fatal]
  - Dizziness [Fatal]
  - Intestinal perforation [Fatal]
  - Lethargy [Fatal]

NARRATIVE: CASE EVENT DATE: 20210629
